FAERS Safety Report 6152583-1 (Version None)
Quarter: 2009Q2

REPORT INFORMATION
  Report Type: 
  Country: None (occurrence: None)
  Receive Date: 20090413
  Receipt Date: 20090407
  Transmission Date: 20091009
  Serious: Yes (Life-Threatening, Hospitalization)
  Sender: FDA-Public Use
  Company Number: FR-BRISTOL-MYERS SQUIBB COMPANY-14581458

PATIENT
  Age: 81 Year
  Sex: Female

DRUGS (6)
  1. METFORMIN HCL [Suspect]
     Route: 048
     Dates: end: 20090207
  2. LODOZ [Suspect]
     Route: 048
     Dates: end: 20090207
  3. COZAAR [Suspect]
     Dates: end: 20090207
  4. VASTAREL [Concomitant]
  5. LYRICA [Concomitant]
  6. ZOCOR [Concomitant]

REACTIONS (4)
  - ACCIDENTAL OVERDOSE [None]
  - HYPERKALAEMIA [None]
  - LACTIC ACIDOSIS [None]
  - RENAL FAILURE [None]
